FAERS Safety Report 9376927 (Version 1)
Quarter: 2013Q3

REPORT INFORMATION
  Report Type: Spontaneous
  Country: JP (occurrence: JP)
  Receive Date: 20130701
  Receipt Date: 20130701
  Transmission Date: 20140515
  Serious: Yes (Death)
  Sender: FDA-Public Use
  Company Number: PHHY2013JP067142

PATIENT
  Sex: Male

DRUGS (3)
  1. ZOMETA [Suspect]
     Indication: HYPERCALCAEMIA
     Dosage: UNK UKN, UNK
     Route: 041
     Dates: start: 20120412
  2. RYTHMODAN P [Concomitant]
     Dosage: UNK UKN, UNK
     Route: 041
     Dates: start: 20120415
  3. RYTHMODAN [Concomitant]
     Route: 048

REACTIONS (4)
  - Cardiac failure congestive [Fatal]
  - Pulmonary oedema [Fatal]
  - Oral administration complication [Unknown]
  - Pyrexia [Unknown]
